FAERS Safety Report 8205436-9 (Version None)
Quarter: 2012Q1

REPORT INFORMATION
  Report Type: 
  Country: None (occurrence: None)
  Receive Date: 20120313
  Receipt Date: 20120305
  Transmission Date: 20120608
  Serious: Yes (Other)
  Sender: FDA-Public Use
  Company Number: CA-US-EMD SERONO, INC.-7097506

PATIENT
  Sex: Female

DRUGS (3)
  1. REBIF [Suspect]
     Route: 058
     Dates: start: 20120227
  2. OMATEC (OLMETEC) [Suspect]
     Indication: HYPERTENSION
  3. REBIF [Suspect]
     Indication: MULTIPLE SCLEROSIS
     Route: 058
     Dates: start: 20030917, end: 20120201

REACTIONS (6)
  - ANXIETY [None]
  - PRURITUS [None]
  - OPTIC NEURITIS [None]
  - URTICARIA [None]
  - WHITE BLOOD CELL DISORDER [None]
  - HYPERTENSION [None]
